FAERS Safety Report 8221814-6 (Version None)
Quarter: 2012Q1

REPORT INFORMATION
  Report Type: 
  Country: None (occurrence: None)
  Receive Date: 20120320
  Receipt Date: 20120206
  Transmission Date: 20120608
  Serious: No
  Sender: FDA-Public Use
  Company Number: US-BAYER-2012-026294

PATIENT
  Sex: Female

DRUGS (5)
  1. CELECOXIB [Concomitant]
  2. NAPROXEN SODIUM [Suspect]
  3. TOPROL-XL [Concomitant]
     Dosage: 100 MG, UNK
  4. FISH OIL [Concomitant]
     Dosage: 100 MG, UNK
  5. LITHIUM CARBONATE [Concomitant]
     Dosage: 300 MG, BID

REACTIONS (1)
  - ABDOMINAL PAIN UPPER [None]
